FAERS Safety Report 9856874 (Version 2)
Quarter: 2014Q2

REPORT INFORMATION
  Report Type: Spontaneous
  Country: DE (occurrence: DE)
  Receive Date: 20140130
  Receipt Date: 20140414
  Transmission Date: 20141212
  Serious: Yes (Other)
  Sender: FDA-Public Use
  Company Number: PHHY2014DE010083

PATIENT
  Sex: Female
  Weight: 67 kg

DRUGS (4)
  1. ULTIBRO BREEZHALER [Suspect]
     Indication: CHRONIC OBSTRUCTIVE PULMONARY DISEASE
     Dosage: 1 DF, QD
     Route: 055
     Dates: start: 20140103, end: 20140110
  2. BISOPROLOL [Concomitant]
     Dosage: 1 DF, QD
  3. DAXAS [Concomitant]
     Dosage: 1 DF, QD
  4. XARELTO [Concomitant]
     Dosage: 1 DF, QD

REACTIONS (2)
  - Bronchospasm paradoxical [Recovered/Resolved]
  - Dyspnoea [Recovered/Resolved]
